FAERS Safety Report 4381193-1 (Version None)
Quarter: 2004Q2

REPORT INFORMATION
  Report Type: 
  Country: None (occurrence: None)
  Receive Date: 20040621
  Receipt Date: 20040511
  Transmission Date: 20050107
  Serious: Yes (Hospitalization, Other)
  Sender: FDA-Public Use
  Company Number: PHNU2004DE01814

PATIENT
  Age: 57 Year
  Sex: Male
  Weight: 70 kg

DRUGS (2)
  1. ZOMETA [Suspect]
     Indication: PLASMACYTOMA
     Dosage: 4 MG, QMO
     Route: 042
     Dates: start: 20030122, end: 20040419
  2. DEXA ^CT-ARZNEIMITTEL^ [Concomitant]
     Indication: PLASMACYTOMA
     Dates: start: 20010115, end: 20030721

REACTIONS (10)
  - BIOPSY BONE ABNORMAL [None]
  - BONE LESION [None]
  - C-REACTIVE PROTEIN INCREASED [None]
  - IMPAIRED HEALING [None]
  - ORAL SURGERY [None]
  - OSTEITIS [None]
  - OSTEOMYELITIS CHRONIC [None]
  - OSTEONECROSIS [None]
  - TOOTH EXTRACTION [None]
  - WOUND DEHISCENCE [None]
